FAERS Safety Report 9313967 (Version 1)
Quarter: 2013Q2

REPORT INFORMATION
  Report Type: Spontaneous
  Country: FR (occurrence: FR)
  Receive Date: 20130529
  Receipt Date: 20130529
  Transmission Date: 20140414
  Serious: Yes (Hospitalization)
  Sender: FDA-Public Use
  Company Number: 2013SP004323

PATIENT
  Age: 84 Year
  Sex: Female

DRUGS (25)
  1. VANCOMYCIN [Suspect]
     Indication: PRODUCT USED FOR UNKNOWN INDICATION
     Dates: start: 20130305, end: 20130305
  2. AMOXICILLIN TRIHYDRATE W/CLAVULANTE POTASSIUM [Suspect]
     Indication: PREMEDICATION
     Dates: start: 201303, end: 20130307
  3. PARACETAMOL [Suspect]
     Indication: PAIN
     Route: 042
     Dates: start: 20130224, end: 20130225
  4. PARACETAMOL [Suspect]
     Indication: PREMEDICATION
     Route: 042
     Dates: start: 20130224, end: 20130225
  5. PARACETAMOL [Suspect]
     Indication: PAIN
     Route: 048
     Dates: start: 20130226, end: 20130307
  6. PARACETAMOL [Suspect]
     Indication: PREMEDICATION
     Route: 048
     Dates: start: 20130226, end: 20130307
  7. RANITIDINE [Suspect]
     Indication: PREMEDICATION
     Route: 048
     Dates: start: 20130305, end: 20130305
  8. CELEBREX [Suspect]
     Indication: PAIN
     Route: 048
     Dates: start: 20130227, end: 20130307
  9. CELEBREX [Suspect]
     Indication: PREMEDICATION
     Route: 048
     Dates: start: 20130227, end: 20130307
  10. OMEPRAZOLE [Suspect]
     Indication: PRODUCT USED FOR UNKNOWN INDICATION
     Route: 048
     Dates: start: 20130227, end: 20130307
  11. SEVOFLURANE [Suspect]
     Indication: ANAESTHESIA
     Route: 055
     Dates: start: 20130305, end: 20130305
  12. SUFENTANIL [Suspect]
     Indication: ANAESTHESIA
     Dates: start: 20130305, end: 20130305
  13. DIPRIVAN [Suspect]
     Indication: ANAESTHESIA
     Dates: start: 20130305, end: 20130305
  14. KETAMINE [Suspect]
     Indication: ANAESTHESIA
     Dates: start: 20130305, end: 20130305
  15. BETAMETHASONE SODIUM PHOSPHATE [Suspect]
     Indication: ANAESTHESIA
     Dates: start: 20130305, end: 20130305
  16. EPHEDRINE [Suspect]
     Indication: ANAESTHESIA
     Dates: start: 20130305, end: 20130305
  17. NEOSYNEPHRINE [Suspect]
     Indication: ANAESTHESIA
     Dates: start: 20130305, end: 20130305
  18. DROLEPTAN [Suspect]
     Indication: ANAESTHESIA
     Dates: start: 20130305, end: 20130305
  19. MORPHINE [Suspect]
     Indication: PRODUCT USED FOR UNKNOWN INDICATION
     Dates: start: 20130305, end: 20130305
  20. CLONIDINE HYDROCHLORIDE [Suspect]
     Indication: PRODUCT USED FOR UNKNOWN INDICATION
     Dates: start: 20130305, end: 20130305
  21. BRICANYL [Concomitant]
     Indication: PRODUCT USED FOR UNKNOWN INDICATION
  22. ATROVENT [Concomitant]
     Indication: PRODUCT USED FOR UNKNOWN INDICATION
  23. PYOSTACINE [Concomitant]
     Indication: PRODUCT USED FOR UNKNOWN INDICATION
  24. ACUPAN [Concomitant]
     Indication: PRODUCT USED FOR UNKNOWN INDICATION
     Dates: start: 20130305
  25. APROVEL [Concomitant]
     Indication: PRODUCT USED FOR UNKNOWN INDICATION

REACTIONS (2)
  - Hepatocellular injury [Recovering/Resolving]
  - Cholestasis [Recovering/Resolving]
